FAERS Safety Report 23597335 (Version 1)
Quarter: 2024Q1

REPORT INFORMATION
  Report Type: Spontaneous
  Country: US (occurrence: None)
  Receive Date: 20240305
  Receipt Date: 20240305
  Transmission Date: 20240409
  Serious: Yes (Hospitalization)
  Sender: FDA-Public Use
  Company Number: None

PATIENT
  Sex: Male

DRUGS (11)
  1. TACROLIMUS [Suspect]
     Active Substance: TACROLIMUS
     Dates: start: 20210122
  2. ASPIRIN TAB 325MG [Concomitant]
  3. METFORMIN TAB 500MG [Concomitant]
  4. MULTI-VIT HP CAP/MINERAL [Concomitant]
  5. MYCOPHENOLATE CAP 250MG [Concomitant]
  6. OMEPRAZOLE TAB 20MG [Concomitant]
  7. TACROLIMUS CAP 5MG [Concomitant]
  8. VITAMIN B-1 TAB [Concomitant]
  9. VITAMIN C CHW 500MG [Concomitant]
  10. VITAMIN D3 CAP 1000 UNIT [Concomitant]
  11. XIFAXAN TAB 550MG [Concomitant]

REACTIONS (2)
  - Surgery [None]
  - Transplant [None]
